FAERS Safety Report 6381436-9 (Version None)
Quarter: 2009Q3

REPORT INFORMATION
  Report Type: 
  Country: None (occurrence: None)
  Receive Date: 20090924
  Receipt Date: 20090908
  Transmission Date: 20100115
  Serious: Yes (Death)
  Sender: FDA-Public Use
  Company Number: 8052187

PATIENT

DRUGS (5)
  1. PREDNISOLONE [Suspect]
     Indication: ANTIPHOSPHOLIPID SYNDROME
     Dosage: 9 MG /D TRP
     Route: 064
     Dates: start: 20080701
  2. PREDNISOLONE [Suspect]
     Indication: SYSTEMIC LUPUS ERYTHEMATOSUS
     Dosage: 9 MG /D TRP
     Route: 064
     Dates: start: 20080701
  3. ASPIRIN [Suspect]
     Indication: ANTIPHOSPHOLIPID SYNDROME
     Dosage: TRP
     Route: 064
     Dates: start: 20080701
  4. ASPIRIN [Suspect]
     Indication: SYSTEMIC LUPUS ERYTHEMATOSUS
     Dosage: TRP
     Route: 064
     Dates: start: 20080701
  5. FAMOTIDINE [Concomitant]

REACTIONS (5)
  - INTRA-UTERINE DEATH [None]
  - MATERNAL DRUGS AFFECTING FOETUS [None]
  - PLACENTAL DISORDER [None]
  - PLACENTAL INFARCTION [None]
  - THROMBOSIS [None]
